FAERS Safety Report 13470239 (Version 1)
Quarter: 2017Q2

REPORT INFORMATION
  Report Type: Spontaneous
  Country: US (occurrence: US)
  Receive Date: 20170421
  Receipt Date: 20170421
  Transmission Date: 20170830
  Serious: No
  Sender: FDA-Public Use
  Company Number: None

PATIENT
  Sex: Female

DRUGS (1)
  1. BOTOX [Suspect]
     Active Substance: ONABOTULINUMTOXINA
     Indication: MIGRAINE
     Dosage: 200 UNITS EVERY 3 MONTHS INTRAMUSCULARLY
     Route: 030
     Dates: start: 20161229, end: 20161229

REACTIONS (4)
  - Nausea [None]
  - Hypoaesthesia [None]
  - Eye pain [None]
  - Facial paralysis [None]
